FAERS Safety Report 15311169 (Version 2)
Quarter: 2018Q4

REPORT INFORMATION
  Report Type: Spontaneous
  Country: US (occurrence: US)
  Receive Date: 20180823
  Receipt Date: 20181001
  Transmission Date: 20190204
  Serious: Yes (Hospitalization)
  Sender: FDA-Public Use
  Company Number: US-FRESENIUS KABI-FK201808854

PATIENT
  Age: 78 Year
  Sex: Female
  Weight: 77.6 kg

DRUGS (6)
  1. INCB024360 [Suspect]
     Active Substance: EPACADOSTAT
     Indication: ENDOMETRIAL ADENOCARCINOMA
     Route: 048
     Dates: start: 20180702, end: 20180709
  2. PEMBROLIZUMAB. [Suspect]
     Active Substance: PEMBROLIZUMAB
     Indication: ENDOMETRIAL ADENOCARCINOMA
     Route: 042
     Dates: start: 20180702, end: 20180730
  3. PEMBROLIZUMAB. [Suspect]
     Active Substance: PEMBROLIZUMAB
     Route: 042
     Dates: start: 20180820
  4. INCB024360 [Suspect]
     Active Substance: EPACADOSTAT
     Route: 048
     Dates: start: 20180730
  5. CARBOPLATIN (MANUFACTURER UNKNOWN) [Suspect]
     Active Substance: CARBOPLATIN
     Indication: ENDOMETRIAL ADENOCARCINOMA
     Route: 042
     Dates: start: 20180702, end: 20180730
  6. 5-FLUOROURACIL [Suspect]
     Active Substance: FLUOROURACIL
     Indication: ENDOMETRIAL ADENOCARCINOMA
     Route: 042
     Dates: start: 20180702, end: 20180730

REACTIONS (3)
  - Diarrhoea [Recovered/Resolved]
  - Febrile neutropenia [Recovered/Resolved]
  - Stomatitis [Recovered/Resolved]

NARRATIVE: CASE EVENT DATE: 20180709
